FAERS Safety Report 8846455 (Version 1)
Quarter: 2012Q4

REPORT INFORMATION
  Report Type: 
  Country: FR (occurrence: FR)
  Receive Date: 20121017
  Receipt Date: 20121017
  Transmission Date: 20130627
  Serious: Yes (Hospitalization)
  Sender: FDA-Public Use
  Company Number: FR-ROCHE-1146030

PATIENT
  Age: 66 Year
  Sex: Female

DRUGS (7)
  1. CELLCEPT [Suspect]
     Indication: PRODUCT USED FOR UNKNOWN INDICATION
     Route: 048
     Dates: start: 2000
  2. NEORAL [Suspect]
     Indication: PRODUCT USED FOR UNKNOWN INDICATION
     Route: 065
     Dates: start: 2000
  3. SOLUPRED (FRANCE) [Concomitant]
     Route: 065
  4. FOSAMAX [Concomitant]
     Route: 065
  5. CYMBALTA [Concomitant]
     Route: 065
  6. XANAX [Concomitant]
     Route: 065
  7. UVEDOSE [Concomitant]
     Route: 065

REACTIONS (1)
  - Squamous cell carcinoma [Not Recovered/Not Resolved]
